FAERS Safety Report 5826479-6 (Version None)
Quarter: 2008Q3

REPORT INFORMATION
  Report Type: 
  Country: None (occurrence: None)
  Receive Date: 20080724
  Receipt Date: 20080710
  Transmission Date: 20090109
  Serious: Yes (Other)
  Sender: FDA-Public Use
  Company Number: 340019J08USA

PATIENT
  Sex: Female

DRUGS (1)
  1. OVIDREL [Suspect]
     Indication: INFERTILITY FEMALE
     Dosage: 250 MCG
     Dates: start: 20080709

REACTIONS (5)
  - ANXIETY [None]
  - CONVULSION [None]
  - DIZZINESS [None]
  - MUSCLE TWITCHING [None]
  - SYNCOPE [None]
